FAERS Safety Report 4491925-X (Version None)
Quarter: 2004Q4

REPORT INFORMATION
  Report Type: 
  Country: None (occurrence: None)
  Receive Date: 20041101
  Receipt Date: 20041022
  Transmission Date: 20050328
  Serious: Yes (Death)
  Sender: FDA-Public Use
  Company Number: 2004-07-0340

PATIENT
  Age: 51 Year
  Sex: Male

DRUGS (9)
  1. PEG-INTRON [Suspect]
     Indication: HEPATITIS C
     Dosage: 120 QWK SUBCUTANEOUS
     Route: 058
     Dates: start: 20020322, end: 20020922
  2. PEG-INTRON [Suspect]
     Indication: HEPATITIS C
     Dosage: 120 QWK SUBCUTANEOUS
     Route: 058
     Dates: start: 20020322, end: 20040101
  3. PEG-INTRON [Suspect]
     Indication: HEPATITIS C
     Dosage: 120 QWK SUBCUTANEOUS
     Route: 058
     Dates: start: 20040120, end: 20040101
  4. RIBAVIRIN [Suspect]
     Indication: HEPATITIS C
     Dates: start: 20040120, end: 20040101
  5. REBETOL [Suspect]
     Indication: HEPATITIS C
     Dosage: 800 MG QD ORAL
     Route: 048
     Dates: start: 20020322, end: 20020922
  6. HYDROCODONE BITARTRATE/ACETAMINOPHEN TABLETS [Concomitant]
  7. KLONOPIN [Concomitant]
  8. PROZAC [Concomitant]
  9. REMERON [Concomitant]

REACTIONS (4)
  - DEPRESSION [None]
  - PANCREATITIS [None]
  - ROAD TRAFFIC ACCIDENT [None]
  - SUICIDAL IDEATION [None]
